FAERS Safety Report 8874696 (Version 1)
Quarter: 2012Q4

REPORT INFORMATION
  Report Type: 
  Country: CY (occurrence: TR)
  Receive Date: 20121029
  Receipt Date: 20121029
  Transmission Date: 20130627
  Serious: Yes (Hospitalization, Other)
  Sender: FDA-Public Use
  Company Number: TR-ELI_LILLY_AND_COMPANY-TR201210005851

PATIENT
  Age: 39 Year
  Sex: Male

DRUGS (10)
  1. OLANZAPINE [Suspect]
     Dosage: 5 mg, qd
  2. OLANZAPINE [Suspect]
     Dosage: 7.5 mg, qd
  3. TRIFLUOPERAZINE [Concomitant]
     Dosage: 15 mg, qd
  4. SULPIRIDE [Concomitant]
     Dosage: 800 mg, qd
  5. THIORIDAZINE [Concomitant]
     Dosage: 100 mg, qd
  6. DIPHENHYDRAMINE [Concomitant]
     Dosage: 50 mg, qd
  7. BIPERIDEN [Concomitant]
     Dosage: 3 mg, qd
  8. FLUVOXAMINE [Concomitant]
     Dosage: 50 mg, qd
  9. ZUCLOPENTHIXOL [Concomitant]
     Dosage: 20 mg, qd
  10. ZUCLOPENTHIXOL [Concomitant]
     Dosage: 10 mg, qd

REACTIONS (14)
  - Substance-induced psychotic disorder [Unknown]
  - Suspiciousness [None]
  - Hallucination, auditory [None]
  - Impaired work ability [None]
  - Insomnia [None]
  - Restlessness [None]
  - Anxiety [None]
  - Impaired self-care [None]
  - Emotional distress [None]
  - Impaired reasoning [None]
  - Persecutory delusion [None]
  - Myoclonus [None]
  - Fear [None]
  - Tardive dyskinesia [Unknown]
